FAERS Safety Report 19686495 (Version 1)
Quarter: 2021Q3

REPORT INFORMATION
  Report Type: Spontaneous
  Country: CH (occurrence: CH)
  Receive Date: 20210811
  Receipt Date: 20210811
  Transmission Date: 20211014
  Serious: Yes (Hospitalization)
  Sender: FDA-Public Use
  Company Number: CH-ACRAF SPA-2021-025404

PATIENT

DRUGS (5)
  1. VALPROIC ACID. [Concomitant]
     Active Substance: VALPROIC ACID
     Indication: PRODUCT USED FOR UNKNOWN INDICATION
     Dosage: 300 ? 300 ? 600 MG
     Route: 065
     Dates: start: 2016
  2. OXCARBAZEPINE. [Concomitant]
     Active Substance: OXCARBAZEPINE
     Indication: PRODUCT USED FOR UNKNOWN INDICATION
     Dosage: 300  ? 300 ? 300 MG
     Route: 065
     Dates: start: 2019
  3. METHYLPHENIDATE. [Concomitant]
     Active Substance: METHYLPHENIDATE
     Indication: PRODUCT USED FOR UNKNOWN INDICATION
     Dosage: 0 ? 10 ? 0 MG
     Route: 065
     Dates: start: 2015
  4. XCOPRI [Suspect]
     Active Substance: CENOBAMATE
     Indication: PARTIAL SEIZURES
     Dosage: 300 MILLIGRAM, QD
     Route: 048
     Dates: start: 20210315
  5. LAMOTRIGINE. [Concomitant]
     Active Substance: LAMOTRIGINE
     Indication: PRODUCT USED FOR UNKNOWN INDICATION
     Dosage: 100 ? 50 ? 50  MG
     Route: 065
     Dates: start: 1997

REACTIONS (9)
  - Nephrolithiasis [Unknown]
  - Haematuria [Recovered/Resolved]
  - Seizure [Recovered/Resolved]
  - Ureterolithiasis [Recovered/Resolved]
  - Malaise [Recovered/Resolved]
  - Nephrolithiasis [Recovered/Resolved]
  - Decreased appetite [Recovered/Resolved]
  - Pollakiuria [Recovered/Resolved]
  - Abdominal pain [Recovered/Resolved]

NARRATIVE: CASE EVENT DATE: 202107
